FAERS Safety Report 13087146 (Version 2)
Quarter: 2017Q1

REPORT INFORMATION
  Report Type: Report from Study
  Country: US (occurrence: US)
  Receive Date: 20170105
  Receipt Date: 20170124
  Transmission Date: 20170428
  Serious: Yes (Other)
  Sender: FDA-Public Use
  Company Number: US-ASTRAZENECA-2016SF35712

PATIENT
  Sex: Female

DRUGS (8)
  1. DOXIL [Concomitant]
     Active Substance: DOXORUBICIN HYDROCHLORIDE
     Dates: start: 20121120
  2. GEMZAR [Concomitant]
     Active Substance: GEMCITABINE HYDROCHLORIDE
     Dosage: 600.0MG/M2 UNKNOWN
     Dates: start: 20130917, end: 20131126
  3. LYNPARZA [Suspect]
     Active Substance: OLAPARIB
     Route: 048
  4. ARIMIDEX [Suspect]
     Active Substance: ANASTROZOLE
     Dosage: DOSE UNKNOWN
     Route: 048
  5. AVASTIN [Concomitant]
     Active Substance: BEVACIZUMAB
  6. PEMETREXED [Concomitant]
     Active Substance: PEMETREXED
     Dosage: 600.0MG/M2 UNKNOWN
     Dates: start: 20130108, end: 20131120
  7. ABRAXANE [Concomitant]
     Active Substance: PACLITAXEL
     Dates: start: 20131231, end: 20140610
  8. TAMOXIFEN [Concomitant]
     Active Substance: TAMOXIFEN
     Route: 048

REACTIONS (3)
  - Malignant neoplasm progression [Unknown]
  - Hyponatraemia [Unknown]
  - Lymphoedema [Unknown]
